FAERS Safety Report 7428554-1 (Version None)
Quarter: 2011Q2

REPORT INFORMATION
  Report Type: 
  Country: None (occurrence: None)
  Receive Date: 20110421
  Receipt Date: 20090125
  Transmission Date: 20111010
  Serious: Yes (Death, Other)
  Sender: FDA-Public Use
  Company Number: US-BAYER-200911459NA

PATIENT
  Age: 68 Year
  Sex: Female
  Weight: 81.633 kg

DRUGS (10)
  1. SYNTHROID [Concomitant]
     Dosage: 50 MCG, UNK
     Route: 048
  2. EVISTA [Concomitant]
     Dosage: 62 MG, UNK
     Route: 048
  3. LIPITOR [Concomitant]
     Dosage: 20 MG, UNK
     Route: 048
  4. TRIAMTEREN HCT [Concomitant]
     Dosage: 50/25 MG
     Route: 048
  5. TRASYLOL [Suspect]
     Indication: CORONARY ARTERY BYPASS
     Route: 042
     Dates: start: 20030905
  6. GLYBURIDE [Concomitant]
     Dosage: 2.5 MG, UNK
     Route: 048
  7. ACETYLSALICYLIC ACID SRT [Concomitant]
  8. LABETALOL [Concomitant]
     Dosage: 200 MG, UNK
     Route: 048
  9. HYDROCHLOROTHIAZIDE [Concomitant]
     Dosage: 25 MG, UNK
     Route: 048
  10. PREMARIN [Concomitant]
     Dosage: 0.625 MG, UNK
     Route: 061

REACTIONS (13)
  - RENAL FAILURE [None]
  - ANHEDONIA [None]
  - INJURY [None]
  - UNEVALUABLE EVENT [None]
  - RENAL IMPAIRMENT [None]
  - RENAL INJURY [None]
  - DEATH [None]
  - FEAR [None]
  - EMOTIONAL DISTRESS [None]
  - ANXIETY [None]
  - STRESS [None]
  - PAIN [None]
  - MULTI-ORGAN FAILURE [None]
